FAERS Safety Report 21887235 (Version 1)
Quarter: 2023Q1

REPORT INFORMATION
  Report Type: Spontaneous
  Country: DK (occurrence: DK)
  Receive Date: 20230119
  Receipt Date: 20230119
  Transmission Date: 20230418
  Serious: Yes (Other)
  Sender: FDA-Public Use
  Company Number: DK-BAXTER-2023BAX010263

PATIENT
  Sex: Female

DRUGS (78)
  1. PREDNISOLONE [Suspect]
     Active Substance: PREDNISOLONE
     Indication: Plasma cell myeloma
     Dosage: 17TH LINE THERAPY- JUN-2019 TO AUG-2019
     Route: 065
     Dates: start: 201901, end: 201908
  2. DEXAMETHASONE [Suspect]
     Active Substance: DEXAMETHASONE
     Indication: Plasma cell myeloma
     Dosage: 2ND LINE THERAPY- FEB-2016 TO FEB-2016
     Route: 065
     Dates: start: 201602, end: 201602
  3. DEXAMETHASONE [Suspect]
     Active Substance: DEXAMETHASONE
     Indication: Plasma cell myeloma
     Dosage: 9TH LINE THERAPY- SEP-2017 TO NOV-2017
     Route: 065
     Dates: start: 201709, end: 201711
  4. DEXAMETHASONE [Suspect]
     Active Substance: DEXAMETHASONE
     Dosage: 10TH LINE THERAPY- NOV-2017 TO NOV-2017
     Route: 065
     Dates: start: 201711, end: 201711
  5. DEXAMETHASONE [Suspect]
     Active Substance: DEXAMETHASONE
     Dosage: 8TH LINE THERAPY- SEP-2017 TO SEP-2017
     Route: 065
     Dates: start: 201709, end: 201709
  6. DEXAMETHASONE [Suspect]
     Active Substance: DEXAMETHASONE
     Dosage: 13TH LINE THERAPY- MAR-2018 TO APR-2018
     Route: 065
     Dates: start: 201803, end: 201804
  7. DEXAMETHASONE [Suspect]
     Active Substance: DEXAMETHASONE
     Dosage: 20TH LINE THERAPY- JAN-2020 TO JAN-2020
     Route: 065
     Dates: start: 202001, end: 202001
  8. DEXAMETHASONE [Suspect]
     Active Substance: DEXAMETHASONE
     Dosage: 5TH LINE THERAPY- APR-2017 TO JUL-2017
     Route: 065
     Dates: start: 201704, end: 201707
  9. DEXAMETHASONE [Suspect]
     Active Substance: DEXAMETHASONE
     Dosage: 16TH LINE THERAPY- MAY-2019 TO JUN-2019
     Route: 065
     Dates: start: 201905, end: 201906
  10. DEXAMETHASONE [Suspect]
     Active Substance: DEXAMETHASONE
     Dosage: 7TH LINE THERAPY- AUG-2017 TO SEP-2017
     Route: 065
     Dates: start: 201708, end: 201709
  11. DEXAMETHASONE [Suspect]
     Active Substance: DEXAMETHASONE
     Dosage: 11TH LINE THERAPY- NOV-2017 TO DEC-2017
     Route: 065
     Dates: start: 201711, end: 201712
  12. DEXAMETHASONE [Suspect]
     Active Substance: DEXAMETHASONE
     Dosage: 18TH LINE THERAPY- AUG-2019 TO NOV-2019
     Route: 065
     Dates: start: 201908, end: 201911
  13. DEXAMETHASONE [Suspect]
     Active Substance: DEXAMETHASONE
     Dosage: 14TH LINE THERAPY- APR-2018 TO AUG-2018
     Route: 065
     Dates: start: 201804, end: 201808
  14. DEXAMETHASONE [Suspect]
     Active Substance: DEXAMETHASONE
     Dosage: 4TH LINE THERAPY- SEP-2016 TO MAR-2017
     Route: 065
     Dates: start: 201609, end: 201703
  15. DEXAMETHASONE [Suspect]
     Active Substance: DEXAMETHASONE
     Dosage: 1ST LINE THERAPY- OCT-2014 TO FEB-2015, VGPR
     Route: 065
     Dates: start: 201410, end: 201502
  16. DEXAMETHASONE [Suspect]
     Active Substance: DEXAMETHASONE
     Dosage: 21ST LINE THERAPY- JAN-2020 TO JUN-2020
     Route: 065
     Dates: start: 202001, end: 202006
  17. DEXAMETHASONE [Suspect]
     Active Substance: DEXAMETHASONE
     Dosage: 15TH LINE THERAPY- NOV-2018 TO MAY-2019
     Route: 065
     Dates: start: 201811, end: 201905
  18. DEXAMETHASONE [Suspect]
     Active Substance: DEXAMETHASONE
     Dosage: 3RD LINE THERAPY- FEB-2016 TO SEP-2016
     Route: 065
     Dates: start: 201602, end: 201609
  19. DEXAMETHASONE [Suspect]
     Active Substance: DEXAMETHASONE
     Dosage: 12TH LINE THERAPY- DEC-2017 TO MAR-2018
     Route: 065
     Dates: start: 201712, end: 201803
  20. DEXAMETHASONE [Suspect]
     Active Substance: DEXAMETHASONE
     Dosage: 6TH LINE THERAPY- JUL-2017 TO AUG-2017
     Route: 065
     Dates: start: 201707, end: 201708
  21. ELOTUZUMAB [Suspect]
     Active Substance: ELOTUZUMAB
     Indication: Plasma cell myeloma
     Dosage: 20TH LINE THERAPY- JAN-2020 TO JAN-2020
     Route: 065
     Dates: start: 202001, end: 202001
  22. BELANTAMAB MAFODOTIN [Suspect]
     Active Substance: BELANTAMAB MAFODOTIN
     Indication: Plasma cell myeloma
     Dosage: 22ND LINE THERAPY- JUN-2020 TO OCT-2022
     Route: 065
     Dates: start: 202006, end: 202210
  23. IXAZOMIB [Suspect]
     Active Substance: IXAZOMIB
     Indication: Plasma cell myeloma
     Dosage: 7TH LINE THERAPY- AUG-2017 TO SEP-2017
     Route: 065
     Dates: start: 201708, end: 201709
  24. AZACITIDINE [Suspect]
     Active Substance: AZACITIDINE
     Indication: Plasma cell myeloma
     Dosage: 18TH LINE THERAPY- AUG-2019 TO NOV-2019
     Route: 065
     Dates: start: 201908, end: 201911
  25. PANOBINOSTAT [Suspect]
     Active Substance: PANOBINOSTAT
     Indication: Plasma cell myeloma
     Dosage: 8TH LINE THERAPY- SEP-2017 TO SEP-2017
     Route: 065
     Dates: start: 201709, end: 201709
  26. CARFILZOMIB [Suspect]
     Active Substance: CARFILZOMIB
     Indication: Plasma cell myeloma
     Dosage: 13TH LINE THERAPY- MAR-2018 TO APR-2018
     Route: 065
     Dates: start: 201803, end: 201804
  27. CARFILZOMIB [Suspect]
     Active Substance: CARFILZOMIB
     Dosage: 11TH LINE THERAPY- NOV-2017 TO DEC-2017
     Route: 065
     Dates: start: 201711, end: 201712
  28. CARFILZOMIB [Suspect]
     Active Substance: CARFILZOMIB
     Dosage: 3RD LINE THERAPY- FEB-2016 TO SEP-2016
     Route: 065
     Dates: start: 201602, end: 201609
  29. CARFILZOMIB [Suspect]
     Active Substance: CARFILZOMIB
     Dosage: 12TH LINE THERAPY- DEC-2017 TO MAR-2018
     Route: 065
     Dates: start: 201712, end: 201803
  30. CARFILZOMIB [Suspect]
     Active Substance: CARFILZOMIB
     Dosage: 4TH LINE THERAPY- SEP-2016 TO MAR-2017
     Route: 065
     Dates: start: 201609, end: 201703
  31. CARFILZOMIB [Suspect]
     Active Substance: CARFILZOMIB
     Dosage: 14TH LINE THERAPY- APR-2018 TO AUG-2018
     Route: 065
     Dates: start: 201804, end: 201808
  32. CYCLOPHOSPHAMIDE [Suspect]
     Active Substance: CYCLOPHOSPHAMIDE
     Indication: Plasma cell myeloma
     Dosage: 21ST LINE THERAPY- JAN-2020 TO JUN-2020
     Route: 065
     Dates: start: 202001, end: 202006
  33. CYCLOPHOSPHAMIDE [Suspect]
     Active Substance: CYCLOPHOSPHAMIDE
     Indication: Plasma cell myeloma
     Dosage: 9TH LINE THERAPY- SEP-2017 TO NOV-2017
     Route: 065
     Dates: start: 201709, end: 201711
  34. CYCLOPHOSPHAMIDE [Suspect]
     Active Substance: CYCLOPHOSPHAMIDE
     Dosage: 17TH LINE THERAPY- JUN-2019 TO AUG-2019
     Route: 065
     Dates: start: 201906, end: 201908
  35. CYCLOPHOSPHAMIDE [Suspect]
     Active Substance: CYCLOPHOSPHAMIDE
     Dosage: 8TH LINE THERAPY- SEP-2017 TO SEP-2017
     Route: 065
     Dates: start: 201709, end: 201709
  36. CYCLOPHOSPHAMIDE [Suspect]
     Active Substance: CYCLOPHOSPHAMIDE
     Dosage: 1ST LINE THERAPY- OCT-2014 TO FEB-2015
     Route: 065
     Dates: start: 201410, end: 201502
  37. CYCLOPHOSPHAMIDE [Suspect]
     Active Substance: CYCLOPHOSPHAMIDE
     Dosage: 13TH LINE THERAPY- MAR-2018 TO APR-2018
     Route: 065
     Dates: start: 201803, end: 201804
  38. CYCLOPHOSPHAMIDE [Suspect]
     Active Substance: CYCLOPHOSPHAMIDE
     Dosage: 14TH LINE THERAPY- APR-2018 TO AUG-2018
     Route: 065
     Dates: start: 201804, end: 201808
  39. DOXORUBICIN [Suspect]
     Active Substance: DOXORUBICIN
     Indication: Plasma cell myeloma
     Dosage: 21ST LINE THERAPY- JAN-2020 TO JUN-2020
     Route: 065
     Dates: start: 202001, end: 202006
  40. VENETOCLAX [Suspect]
     Active Substance: VENETOCLAX
     Indication: Plasma cell myeloma
     Dosage: 11TH LINE THERAPY- NOV-2017 TO DEC-2017
     Route: 065
     Dates: start: 201711, end: 201712
  41. VENETOCLAX [Suspect]
     Active Substance: VENETOCLAX
     Dosage: 10TH LINE THERAPY- NOV-2017 TO NOV-2017
     Route: 065
     Dates: start: 201711, end: 201711
  42. LENALIDOMIDE [Suspect]
     Active Substance: LENALIDOMIDE
     Indication: Plasma cell myeloma
     Dosage: 16TH LINE THERAPY- MAY-2019 TO JUN-2019
     Route: 065
     Dates: start: 201905, end: 201906
  43. LENALIDOMIDE [Suspect]
     Active Substance: LENALIDOMIDE
     Indication: Plasma cell myeloma
     Dosage: 2ND LINE THERAPY- FEB-2016 TO FEB-2016
     Route: 065
     Dates: start: 201602, end: 201602
  44. LENALIDOMIDE [Suspect]
     Active Substance: LENALIDOMIDE
     Dosage: 14TH LINE THERAPY- APR-2018 TO AUG-2018
     Route: 065
     Dates: start: 201804, end: 201808
  45. LENALIDOMIDE [Suspect]
     Active Substance: LENALIDOMIDE
     Dosage: 15TH LINE THERAPY- NOV-2018 TO MAY-2019
     Route: 065
     Dates: start: 201811, end: 201905
  46. LENALIDOMIDE [Suspect]
     Active Substance: LENALIDOMIDE
     Dosage: 18TH LINE THERAPY- AUG-2019 TO NOV-2019
     Route: 065
     Dates: start: 201908, end: 201911
  47. ETOPOSIDE [Suspect]
     Active Substance: ETOPOSIDE
     Indication: Plasma cell myeloma
     Dosage: 17TH LINE THERAPY- JUN-2019 TO AUG-2019
     Route: 065
     Dates: start: 201906, end: 201908
  48. DARATUMUMAB [Suspect]
     Active Substance: DARATUMUMAB
     Indication: Plasma cell myeloma
     Dosage: 18TH LINE THERAPY- AUG-2019 TO NOV-2019
     Route: 065
     Dates: start: 201908, end: 201911
  49. DARATUMUMAB [Suspect]
     Active Substance: DARATUMUMAB
     Dosage: 12TH LINE THERAPY- DEC-2017 TO MAR-2018
     Route: 065
     Dates: start: 201712, end: 201803
  50. DARATUMUMAB [Suspect]
     Active Substance: DARATUMUMAB
     Dosage: 17TH LINE THERAPY- JUN-2019 TO AUG-2019
     Route: 065
     Dates: start: 201906, end: 201908
  51. DARATUMUMAB [Suspect]
     Active Substance: DARATUMUMAB
     Dosage: 15TH LINE THERAPY- NOV-2018 TO MAY-2019
     Route: 065
     Dates: start: 201811, end: 201905
  52. DARATUMUMAB [Suspect]
     Active Substance: DARATUMUMAB
     Dosage: 16TH LINE THERAPY- MAY-2019 TO JUN-2019
     Route: 065
     Dates: start: 201905, end: 201906
  53. DARATUMUMAB [Suspect]
     Active Substance: DARATUMUMAB
     Dosage: 11TH LINE THERAPY- NOV-2017 TO DEC-2017
     Route: 065
     Dates: start: 201711, end: 201712
  54. DARATUMUMAB [Suspect]
     Active Substance: DARATUMUMAB
     Dosage: 9TH LINE THERAPY- SEP-2017 TO NOV-2017
     Route: 065
     Dates: start: 201709, end: 201711
  55. DARATUMUMAB [Suspect]
     Active Substance: DARATUMUMAB
     Dosage: 13TH LINE THERAPY- MAR-2018 TO APR-2018
     Route: 065
     Dates: start: 201803, end: 201804
  56. DARATUMUMAB [Suspect]
     Active Substance: DARATUMUMAB
     Dosage: 8TH LINE THERAPY- SEP-2017 TO SEP-2017
     Route: 065
     Dates: start: 201709, end: 201709
  57. DARATUMUMAB [Suspect]
     Active Substance: DARATUMUMAB
     Dosage: 4TH LINE THERAPY- SEP-2016 TO MAR-2017
     Route: 065
     Dates: start: 201609, end: 201703
  58. DARATUMUMAB [Suspect]
     Active Substance: DARATUMUMAB
     Dosage: 5TH LINE THERAPY- APR-2017 TO JUL-2017
     Route: 065
     Dates: start: 201704, end: 201707
  59. DARATUMUMAB [Suspect]
     Active Substance: DARATUMUMAB
     Dosage: 19TH LINE THERAPY- DEC-2019 TO JAN-2020
     Route: 065
     Dates: start: 201912, end: 202001
  60. DARATUMUMAB [Suspect]
     Active Substance: DARATUMUMAB
     Dosage: 7TH LINE THERAPY- AUG-2017 TO SEP-2017
     Route: 065
     Dates: start: 201708, end: 201709
  61. DARATUMUMAB [Suspect]
     Active Substance: DARATUMUMAB
     Dosage: 6TH LINE THERAPY- JUL-2017 TO AUG-2017
     Route: 065
     Dates: start: 201707, end: 201708
  62. DARATUMUMAB [Suspect]
     Active Substance: DARATUMUMAB
     Dosage: 21ST LINE THERAPY- JAN-2020 TO JUN-2020
     Route: 065
     Dates: start: 202001, end: 202006
  63. VINCRISTINE [Suspect]
     Active Substance: VINCRISTINE
     Indication: Plasma cell myeloma
     Dosage: 8TH LINE THERAPY- SEP-2017 TO SEP-2017
     Route: 065
     Dates: start: 201709, end: 201709
  64. POMALIDOMIDE [Suspect]
     Active Substance: POMALIDOMIDE
     Indication: Plasma cell myeloma
     Dosage: 5TH LINE THERAPY- APR-2017 TO JUL-2017
     Route: 065
     Dates: start: 201704, end: 201707
  65. POMALIDOMIDE [Suspect]
     Active Substance: POMALIDOMIDE
     Dosage: 6TH LINE THERAPY- JUL-2017 TO AUG-2017
     Route: 065
     Dates: start: 201707, end: 201708
  66. POMALIDOMIDE [Suspect]
     Active Substance: POMALIDOMIDE
     Dosage: 3RD LINE THERAPY- FEB-2016 TO SEP-2016
     Route: 065
     Dates: start: 201602, end: 201609
  67. POMALIDOMIDE [Suspect]
     Active Substance: POMALIDOMIDE
     Dosage: 21ST LINE THERAPY- JAN-2020 TO JUN-2020
     Route: 065
     Dates: start: 202001, end: 202006
  68. POMALIDOMIDE [Suspect]
     Active Substance: POMALIDOMIDE
     Dosage: 20TH LINE THERAPY- JAN-2020 TO JAN-2020
     Route: 065
     Dates: start: 202001, end: 202001
  69. POMALIDOMIDE [Suspect]
     Active Substance: POMALIDOMIDE
     Dosage: 7TH LINE THERAPY- AUG-2017 TO SEP-2017
     Route: 065
     Dates: start: 201708, end: 201709
  70. POMALIDOMIDE [Suspect]
     Active Substance: POMALIDOMIDE
     Dosage: 4TH LINE THERAPY- SEP-2016 TO MAR-2017
     Route: 065
     Dates: start: 201609, end: 201703
  71. PEMBROLIZUMAB [Suspect]
     Active Substance: PEMBROLIZUMAB
     Indication: Plasma cell myeloma
     Dosage: 16TH LINE THERAPY- MAY-2019 TO JUN-2019
     Route: 065
     Dates: start: 201905, end: 201906
  72. PEMBROLIZUMAB [Suspect]
     Active Substance: PEMBROLIZUMAB
     Dosage: 14TH LINE THERAPY- APR-2018 TO AUG-2018
     Route: 065
     Dates: start: 201804, end: 201808
  73. PEMBROLIZUMAB [Suspect]
     Active Substance: PEMBROLIZUMAB
     Dosage: 15TH LINE THERAPY- NOV-2018 TO MAY-2019
     Route: 065
     Dates: start: 201811, end: 201905
  74. BORTEZOMIB [Suspect]
     Active Substance: BORTEZOMIB
     Indication: Plasma cell myeloma
     Dosage: 6TH LINE THERAPY- JUL-2017 TO AUG-2017
     Route: 065
     Dates: start: 201707, end: 201708
  75. BORTEZOMIB [Suspect]
     Active Substance: BORTEZOMIB
     Indication: Plasma cell myeloma
     Dosage: 1ST LINE THERAPY- OCT-2014 TO FEB-2015
     Route: 065
     Dates: start: 201410, end: 201502
  76. BORTEZOMIB [Suspect]
     Active Substance: BORTEZOMIB
     Dosage: 21ST LINE THERAPY- JAN-2020 TO JUN-2020
     Route: 065
     Dates: start: 202001, end: 202006
  77. BORTEZOMIB [Suspect]
     Active Substance: BORTEZOMIB
     Dosage: 16TH LINE THERAPY- MAY-2019 TO JUN-2019
     Route: 065
     Dates: start: 201905, end: 201906
  78. ACYCLOVIR [Concomitant]
     Active Substance: ACYCLOVIR
     Indication: Product used for unknown indication
     Dosage: UNK
     Route: 065

REACTIONS (6)
  - Plasma cell myeloma [Recovered/Resolved]
  - Plasma cell myeloma [Recovered/Resolved]
  - Disease progression [Unknown]
  - Central nervous system lesion [Unknown]
  - Bone disorder [Unknown]
  - Therapy partial responder [Unknown]
